FAERS Safety Report 8997992 (Version 1)
Quarter: 2013Q1

REPORT INFORMATION
  Report Type: Spontaneous
  Country: GB (occurrence: GB)
  Receive Date: 20130104
  Receipt Date: 20130104
  Transmission Date: 20140127
  Serious: Yes (Other)
  Sender: FDA-Public Use
  Company Number: PHHY2012GB122136

PATIENT
  Sex: 0

DRUGS (2)
  1. VANCOMYCIN [Suspect]
     Indication: PYREXIA
     Dosage: 60 MG/KG, QD
     Route: 042
  2. OFLOXACIN [Concomitant]
     Indication: PYREXIA
     Dosage: 200 MG, BID

REACTIONS (2)
  - Cyanosis [Unknown]
  - Hypotension [Unknown]
